FAERS Safety Report 9934554 (Version 1)
Quarter: 2014Q1

REPORT INFORMATION
  Report Type: Spontaneous
  Country: DE (occurrence: DE)
  Receive Date: 20140228
  Receipt Date: 20140228
  Transmission Date: 20141002
  Serious: Yes (Hospitalization, Other)
  Sender: FDA-Public Use
  Company Number: DE-CUBIST PHARMACEUTICAL, INC.-2014CBST000278

PATIENT
  Sex: 0

DRUGS (9)
  1. CUBICIN [Suspect]
     Indication: PURULENT PERICARDITIS
     Dosage: UNK UNK, UNK
     Route: 065
  2. CUBICIN [Suspect]
     Indication: STREPTOCOCCAL INFECTION
  3. CUBICIN [Suspect]
     Indication: OFF LABEL USE
  4. MEROPENEM [Concomitant]
     Indication: STREPTOCOCCAL INFECTION
     Dosage: UNK UNK, UNK
     Route: 065
  5. MEROPENEM [Concomitant]
     Indication: PURULENT PERICARDITIS
  6. CIPROFLOXACIN [Concomitant]
     Indication: STREPTOCOCCAL INFECTION
     Dosage: UNK UNK, UNK
     Route: 065
  7. CIPROFLOXACIN [Concomitant]
     Indication: PURULENT PERICARDITIS
  8. NORADRENALIN                       /00127501/ [Concomitant]
     Indication: BLOOD PRESSURE ABNORMAL
     Dosage: UNK UNK, UNK
     Route: 042
  9. VASOPRESSIN [Concomitant]
     Indication: BLOOD PRESSURE ABNORMAL
     Dosage: UNK UNK, UNK
     Route: 042

REACTIONS (1)
  - Cardiac tamponade [Recovering/Resolving]
